FAERS Safety Report 10595605 (Version 1)
Quarter: 2014Q4

REPORT INFORMATION
  Report Type: Spontaneous
  Country: CN (occurrence: None)
  Receive Date: 20141118
  Receipt Date: 20141118
  Transmission Date: 20150529
  Serious: Yes (Other)
  Sender: FDA-Public Use
  Company Number: 2014SGN01455

PATIENT
  Age: 30 Year
  Sex: Female

DRUGS (2)
  1. ADCETRIS [Suspect]
     Active Substance: BRENTUXIMAB VEDOTIN
     Indication: HODGKIN^S DISEASE
     Route: 042
     Dates: start: 20120522
  2. ADCETRIS [Suspect]
     Active Substance: BRENTUXIMAB VEDOTIN
     Indication: DISEASE RECURRENCE
     Route: 042
     Dates: start: 20120522

REACTIONS (7)
  - Nausea [None]
  - Hepatitis B [None]
  - Neutropenia [None]
  - Pyrexia [None]
  - Liver injury [None]
  - Alopecia [None]
  - Fatigue [None]
